FAERS Safety Report 19138041 (Version 5)
Quarter: 2021Q3

REPORT INFORMATION
  Report Type: Spontaneous
  Country: US (occurrence: US)
  Receive Date: 20210415
  Receipt Date: 20210811
  Transmission Date: 20211014
  Serious: Yes (Other)
  Sender: FDA-Public Use
  Company Number: US-LUPIN PHARMACEUTICALS INC.-2021-04633

PATIENT
  Age: 56 Year
  Sex: Female
  Weight: 52.15 kg

DRUGS (5)
  1. HYDROCODONE BITARTRATE. [Concomitant]
     Active Substance: HYDROCODONE BITARTRATE
     Indication: HEADACHE
     Dosage: 100 MILLIGRAM (AS NEEDED OR TWO TIMES A DAY )
     Route: 065
  2. BUTALBITAL SODIUM. [Concomitant]
     Active Substance: BUTALBITAL SODIUM
     Indication: HEADACHE
     Dosage: 50/325 AS NEEDED
     Route: 065
  3. RIFAMPIN CAPSULES USP, 300 MG [Suspect]
     Active Substance: RIFAMPIN
     Indication: TUBERCULOSIS
     Dosage: UNK
     Route: 048
  4. RIFAMPIN CAPSULES USP, 300 MG [Suspect]
     Active Substance: RIFAMPIN
     Dosage: 2 DOSAGE FORM, QD (SECOND BOTTLE)
     Route: 048
     Dates: start: 20210221
  5. PREDNISONE. [Concomitant]
     Active Substance: PREDNISONE
     Indication: INFLAMMATION
     Dosage: 10 MILLIGRAM, QD
     Route: 065

REACTIONS (22)
  - Migraine [Not Recovered/Not Resolved]
  - Disturbance in attention [Not Recovered/Not Resolved]
  - Pain in extremity [Unknown]
  - Abnormal behaviour [Unknown]
  - Memory impairment [Unknown]
  - Pyrexia [Unknown]
  - Illness [Unknown]
  - Feeling abnormal [Not Recovered/Not Resolved]
  - Pain [Not Recovered/Not Resolved]
  - Chest pain [Unknown]
  - Fatigue [Unknown]
  - Ataxia [Unknown]
  - Lethargy [Not Recovered/Not Resolved]
  - Dizziness [Unknown]
  - Muscular weakness [Unknown]
  - Headache [Not Recovered/Not Resolved]
  - Condition aggravated [Not Recovered/Not Resolved]
  - Fear of disease [Not Recovered/Not Resolved]
  - Somnolence [Unknown]
  - Visual impairment [Not Recovered/Not Resolved]
  - Confusional state [Unknown]
  - Hypoaesthesia [Unknown]

NARRATIVE: CASE EVENT DATE: 2021
